FAERS Safety Report 21135141 (Version 2)
Quarter: 2022Q3

REPORT INFORMATION
  Report Type: Spontaneous
  Country: FR (occurrence: FR)
  Receive Date: 20220727
  Receipt Date: 20220729
  Transmission Date: 20221027
  Serious: Yes (Life-Threatening, Other)
  Sender: FDA-Public Use
  Company Number: None

PATIENT
  Age: 63 Year
  Sex: Male
  Weight: 68 kg

DRUGS (16)
  1. SCOPOLAMINE [Interacting]
     Active Substance: SCOPOLAMINE
     Indication: Salivary hypersecretion
     Dosage: 2 {DF} (DOSAGE FORM) EVERY 72 HOURS
     Route: 003
     Dates: start: 20220313, end: 20220314
  2. SCOPOLAMINE [Interacting]
     Active Substance: SCOPOLAMINE
     Dosage: 1 {DF} (DOSAGE FORM) EVERY 72 HOURS
     Route: 003
     Dates: start: 20220304, end: 20220311
  3. SCOPOLAMINE [Interacting]
     Active Substance: SCOPOLAMINE
     Dosage: 1 {DF} (DOSAGE FORM) EVERY 72 HOURS
     Route: 003
     Dates: start: 20220316, end: 20220321
  4. ZOPICLONE [Interacting]
     Active Substance: ZOPICLONE
     Indication: Insomnia
     Dosage: 7.5 MG PER DAY
     Route: 048
     Dates: start: 20211224, end: 20220314
  5. LOXAPINE [Interacting]
     Active Substance: LOXAPINE
     Indication: Schizophrenia
     Dosage: 75 MG PER DAY
     Route: 048
     Dates: start: 20211230, end: 20220224
  6. LOXAPINE [Interacting]
     Active Substance: LOXAPINE
     Dosage: 125 MG PER DAY
     Route: 048
     Dates: start: 20220224, end: 20220307
  7. LOXAPINE [Interacting]
     Active Substance: LOXAPINE
     Dosage: 75 MG PER DAY
     Route: 048
     Dates: start: 20220307, end: 20220310
  8. LOXAPINE [Interacting]
     Active Substance: LOXAPINE
     Dosage: 25 MG PER DAY
     Route: 048
     Dates: start: 20220310, end: 20220314
  9. VALPROATE SODIUM [Suspect]
     Active Substance: VALPROATE SODIUM
     Indication: Schizophrenia
     Dosage: 4 {DF} (DOSAGE FORM) PER DAY, 500 MG, PROLONGED-RELEASE SCORED FILM-COATED TABLET
     Route: 048
     Dates: start: 20211224, end: 20220314
  10. CLOZAPINE [Interacting]
     Active Substance: CLOZAPINE
     Indication: Schizophrenia
     Dosage: 200 MG PER DAY
     Route: 048
     Dates: start: 20211230, end: 20220314
  11. MIANSERIN HYDROCHLORIDE [Interacting]
     Active Substance: MIANSERIN HYDROCHLORIDE
     Indication: Depression
     Dosage: 30 MG PER DAY
     Route: 048
     Dates: start: 20211224, end: 20220314
  12. TROPATEPINE HYDROCHLORIDE [Suspect]
     Active Substance: TROPATEPINE HYDROCHLORIDE
     Indication: Extrapyramidal disorder
     Dosage: 20 MG PER DAY
     Route: 048
     Dates: start: 20211224, end: 20220314
  13. VALIUM [Interacting]
     Active Substance: DIAZEPAM
     Indication: Schizophrenia
     Dosage: 30 MG PER DAY
     Route: 048
     Dates: start: 20220223
  14. X prep [Concomitant]
     Indication: Constipation
     Dosage: 2 {DF} (DOSAGE FORM) EVERY 72 HOURS, ORAL POWDER IN SACHET
     Route: 048
     Dates: start: 20220306, end: 20220313
  15. X prep [Concomitant]
     Dosage: 2 {DF} (DOSAGE FORM) EVERY 72 HOURS, ORAL POWDER IN SACHET
     Route: 048
     Dates: start: 20220318, end: 20220321
  16. POLYETHYLENE GLYCOLS [Concomitant]
     Active Substance: POLYETHYLENE GLYCOLS
     Dosage: 4 {DF} (DOSAGE FORM) PER DAY
     Route: 048
     Dates: start: 20211224

REACTIONS (2)
  - Intestinal obstruction [Recovered/Resolved]
  - Drug interaction [Recovered/Resolved]

NARRATIVE: CASE EVENT DATE: 20220314
